FAERS Safety Report 23956901 (Version 1)
Quarter: 2024Q2

REPORT INFORMATION
  Report Type: Report from Study
  Country: US (occurrence: US)
  Receive Date: 20240610
  Receipt Date: 20240610
  Transmission Date: 20240716
  Serious: Yes (Hospitalization, Other)
  Sender: FDA-Public Use
  Company Number: US-ROCHE-2647712

PATIENT
  Age: 68 Year
  Sex: Female
  Weight: 56.75 kg

DRUGS (11)
  1. VALIUM [Suspect]
     Active Substance: DIAZEPAM
     Indication: Seizure
     Dosage: ONGOING:YES
     Route: 065
     Dates: start: 20200513
  2. OCREVUS [Suspect]
     Active Substance: OCRELIZUMAB
     Indication: Relapsing-remitting multiple sclerosis
     Dosage: 600 MG EVERY 6 MONTH, DATE OF SERVICE WAS 11/NOV/2021
     Route: 042
     Dates: start: 201908
  3. OCREVUS [Suspect]
     Active Substance: OCRELIZUMAB
     Indication: Multiple sclerosis
  4. BACLOFEN [Concomitant]
     Active Substance: BACLOFEN
     Indication: Muscle spasms
     Dosage: ONGOING: YES
     Route: 048
     Dates: start: 2018
  5. METHADONE [Concomitant]
     Active Substance: METHADONE HYDROCHLORIDE
     Indication: Product used for unknown indication
     Dosage: TIME INTERVAL: 0.33 DAYS;
     Route: 048
     Dates: start: 2002
  6. LISINOPRIL [Concomitant]
     Active Substance: LISINOPRIL
     Indication: Hypertension
     Dosage: ONGOING: YES
     Route: 048
  7. PROMETHAZINE [Concomitant]
     Active Substance: PROMETHAZINE HYDROCHLORIDE
     Indication: Nausea
     Dosage: ONGOING: YES
     Route: 048
     Dates: start: 2018
  8. ONDANSETRON [Concomitant]
     Active Substance: ONDANSETRON
     Indication: Nausea
     Dosage: ONGOING: YES
     Route: 048
  9. URIBEL [Concomitant]
     Active Substance: HYOSCYAMINE SULFATE\METHENAMINE\METHYLENE BLUE\PHENYL SALICYLATE\SODIUM PHOSPHATE, MONOBASIC, MONOHY
     Indication: Cystitis interstitial
     Dosage: ONGOING: YES TIME INTERVAL: 0.33 DAYS;
     Route: 048
     Dates: start: 2015
  10. GABAPENTIN [Concomitant]
     Active Substance: GABAPENTIN
     Indication: Product used for unknown indication
     Dosage: ONGOING: YES TIME INTERVAL: 0.33 DAYS;
     Route: 048
     Dates: start: 2016
  11. CLONIDINE [Concomitant]
     Active Substance: CLONIDINE
     Indication: Hypertension
     Route: 048
     Dates: start: 2019

REACTIONS (25)
  - Haematological infection [Unknown]
  - Nausea [Not Recovered/Not Resolved]
  - Skin exfoliation [Not Recovered/Not Resolved]
  - Alopecia [Not Recovered/Not Resolved]
  - Tremor [Not Recovered/Not Resolved]
  - Irritability [Not Recovered/Not Resolved]
  - Arthralgia [Not Recovered/Not Resolved]
  - Arthropathy [Not Recovered/Not Resolved]
  - Headache [Not Recovered/Not Resolved]
  - Pain [Not Recovered/Not Resolved]
  - Seizure [Recovered/Resolved]
  - Visual impairment [Unknown]
  - Cystitis interstitial [Unknown]
  - Multiple sclerosis [Unknown]
  - Muscle spasticity [Unknown]
  - Gait disturbance [Unknown]
  - Thrombosis [Recovered/Resolved]
  - Fall [Unknown]
  - Urinary tract infection [Not Recovered/Not Resolved]
  - Cystitis [Unknown]
  - Kidney infection [Unknown]
  - Hallucination [Recovered/Resolved]
  - Diarrhoea [Recovered/Resolved]
  - Vomiting [Recovered/Resolved]
  - Drug ineffective [Recovered/Resolved]

NARRATIVE: CASE EVENT DATE: 20191001
